FAERS Safety Report 6439920-5 (Version None)
Quarter: 2009Q4

REPORT INFORMATION
  Report Type: 
  Country: None (occurrence: None)
  Receive Date: 20091113
  Receipt Date: 20091113
  Transmission Date: 20100525
  Serious: Yes (Other)
  Sender: FDA-Public Use
  Company Number: US-PFIZER INC-2009226070

PATIENT
  Sex: Female
  Weight: 86 kg

DRUGS (3)
  1. LIPITOR [Suspect]
     Indication: BLOOD CHOLESTEROL INCREASED
     Dosage: 20 MG, 1X/DAY
  2. BEXTRA [Suspect]
     Indication: PAIN
     Route: 048
  3. PREMARIN [Concomitant]
     Dosage: UNK

REACTIONS (4)
  - CHOLECYSTECTOMY [None]
  - HYPERTENSION [None]
  - MEMORY IMPAIRMENT [None]
  - WEIGHT INCREASED [None]
